FAERS Safety Report 24989326 (Version 1)
Quarter: 2025Q1

REPORT INFORMATION
  Report Type: Spontaneous
  Country: US (occurrence: US)
  Receive Date: 20250220
  Receipt Date: 20250220
  Transmission Date: 20250409
  Serious: Yes (Hospitalization)
  Sender: TAKEDA
  Company Number: US-TAKEDA-2025TUS016269

PATIENT
  Sex: Male
  Weight: 89 kg

DRUGS (1)
  1. TAKHZYRO [Suspect]
     Active Substance: LANADELUMAB-FLYO
     Indication: Sideroblastic anaemia
     Dosage: 150 MILLIGRAM, Q2WEEKS
     Dates: start: 20240201

REACTIONS (2)
  - Swelling face [Unknown]
  - Product availability issue [Unknown]
